FAERS Safety Report 19373273 (Version 1)
Quarter: 2021Q2

REPORT INFORMATION
  Report Type: Spontaneous
  Country: CN (occurrence: CN)
  Receive Date: 20210604
  Receipt Date: 20210604
  Transmission Date: 20210717
  Serious: Yes (Other)
  Sender: FDA-Public Use
  Company Number: CN-ROCHE-2838517

PATIENT
  Age: 39 Year
  Sex: Female

DRUGS (8)
  1. CARBOPLATIN. [Concomitant]
     Active Substance: CARBOPLATIN
  2. PACLITAXEL LIPOSOME [Concomitant]
     Active Substance: PACLITAXEL
  3. HERCEPTIN [Suspect]
     Active Substance: TRASTUZUMAB
     Indication: BREAST CANCER METASTATIC
     Dosage: TCBH:8 MG/KG LOADING DOSE, 6 MG/KG MAINTENANCE DOSE, DAY1
     Route: 065
     Dates: start: 20161129, end: 20170116
  4. HERCEPTIN [Suspect]
     Active Substance: TRASTUZUMAB
     Dosage: TCBH:8 MG/KG LOADING DOSE, 6 MG/KG MAINTENANCE DOSE, DAY1
     Route: 065
     Dates: start: 20170306, end: 20170421
  5. KADCYLA [Suspect]
     Active Substance: ADO-TRASTUZUMAB EMTANSINE
     Route: 065
  6. KADCYLA [Suspect]
     Active Substance: ADO-TRASTUZUMAB EMTANSINE
     Indication: BREAST CANCER METASTATIC
     Dosage: 252MG
     Route: 065
     Dates: start: 20180717
  7. HERCEPTIN [Suspect]
     Active Substance: TRASTUZUMAB
     Dosage: MONOTHERAPY FOR 11 CYCLES
     Route: 065
  8. KADCYLA [Suspect]
     Active Substance: ADO-TRASTUZUMAB EMTANSINE
     Route: 065

REACTIONS (8)
  - Alanine aminotransferase increased [Unknown]
  - Type 2 diabetes mellitus [Unknown]
  - Neutrophil count decreased [Unknown]
  - Aspartate aminotransferase increased [Unknown]
  - Rash [Unknown]
  - Blood bilirubin increased [Unknown]
  - White blood cell count decreased [Unknown]
  - Platelet count decreased [Unknown]
